FAERS Safety Report 10020890 (Version 1)
Quarter: 2014Q1

REPORT INFORMATION
  Report Type: Spontaneous
  Country: GB (occurrence: GB)
  Receive Date: 20140319
  Receipt Date: 20140319
  Transmission Date: 20141002
  Serious: Yes (Disabling)
  Sender: FDA-Public Use
  Company Number: GB-JNJFOC-20140307192

PATIENT
  Age: 36 Year
  Sex: Female
  Weight: 50 kg

DRUGS (1)
  1. PALIPERIDONE PALMITATE [Suspect]
     Indication: PSYCHOTIC DISORDER
     Route: 030
     Dates: start: 20120101, end: 20130901

REACTIONS (3)
  - Loss of libido [Not Recovered/Not Resolved]
  - Amenorrhoea [Recovered/Resolved]
  - Blood prolactin increased [Recovered/Resolved]
